FAERS Safety Report 14678806 (Version 2)
Quarter: 2018Q4

REPORT INFORMATION
  Report Type: Spontaneous
  Country: FR (occurrence: FR)
  Receive Date: 20180326
  Receipt Date: 20181022
  Transmission Date: 20190204
  Serious: Yes (Other)
  Sender: FDA-Public Use
  Company Number: FR-MERCK KGAA-2044505

PATIENT
  Age: 61 Year
  Sex: Female

DRUGS (2)
  1. EUTHYROX [Suspect]
     Active Substance: LEVOTHYROXINE SODIUM
     Indication: POST PROCEDURAL HYPOTHYROIDISM
     Dates: start: 2017
  2. EUTHYROX [Suspect]
     Active Substance: LEVOTHYROXINE SODIUM

REACTIONS (8)
  - Hot flush [None]
  - Loss of personal independence in daily activities [None]
  - Emotional distress [None]
  - Asthenia [None]
  - Fatigue [None]
  - Dizziness [None]
  - Hyperthyroidism [Recovered/Resolved]
  - Insomnia [None]

NARRATIVE: CASE EVENT DATE: 2017
